FAERS Safety Report 25596454 (Version 1)
Quarter: 2025Q3

REPORT INFORMATION
  Report Type: Spontaneous
  Country: EU (occurrence: EU)
  Receive Date: 20250723
  Receipt Date: 20250723
  Transmission Date: 20251021
  Serious: Yes (Hospitalization, Other)
  Sender: NATCO PHARMA
  Company Number: EU-NATCO-000037

PATIENT
  Age: 51 Year
  Sex: Male

DRUGS (1)
  1. DISULFIRAM [Suspect]
     Active Substance: DISULFIRAM
     Indication: Alcoholism
     Route: 065

REACTIONS (3)
  - Cardiogenic shock [Recovered/Resolved]
  - Mitral valve incompetence [Recovering/Resolving]
  - Labelled drug-food interaction issue [Recovered/Resolved]
